FAERS Safety Report 8912950 (Version 4)
Quarter: 2012Q4

REPORT INFORMATION
  Report Type: 
  Country: SE (occurrence: SE)
  Receive Date: 20121116
  Receipt Date: 20121223
  Transmission Date: 20130627
  Serious: Yes (Hospitalization, Other)
  Sender: FDA-Public Use
  Company Number: SE-JNJFOC-20121106110

PATIENT
  Age: 75 Year
  Sex: Male

DRUGS (6)
  1. XARELTO [Suspect]
     Indication: HIP ARTHROPLASTY
     Route: 048
     Dates: start: 20120904, end: 20120910
  2. XARELTO [Suspect]
     Indication: THROMBOSIS PROPHYLAXIS
     Route: 048
     Dates: start: 20120904, end: 20120910
  3. NAPROXEN SODIUM [Interacting]
     Indication: PROCEDURAL PAIN
     Route: 065
  4. DALTEPARIN SODIUM [Concomitant]
     Indication: HIP ARTHROPLASTY
     Route: 058
     Dates: start: 20120913
  5. ENALAPRIL [Concomitant]
     Indication: PRODUCT USED FOR UNKNOWN INDICATION
     Route: 065
  6. NSAID^S [Concomitant]
     Indication: PRODUCT USED FOR UNKNOWN INDICATION
     Route: 065

REACTIONS (3)
  - Gastric ulcer [Recovered/Resolved]
  - Melaena [Recovered/Resolved]
  - Drug interaction [Unknown]
